FAERS Safety Report 5015613-6 (Version None)
Quarter: 2006Q2

REPORT INFORMATION
  Report Type: 
  Country: None (occurrence: None)
  Receive Date: 20060525
  Receipt Date: 20060517
  Transmission Date: 20061013
  Serious: Yes (Hospitalization)
  Sender: FDA-Public Use
  Company Number: 2006-02019

PATIENT
  Sex: Male

DRUGS (1)
  1. NICOTINE POLACRILEX [Suspect]
     Indication: NICOTINE DEPENDENCE
     Dosage: 4 - 5 PIECES, Q1H, BUCCAL
     Route: 002
     Dates: start: 19960101

REACTIONS (4)
  - NEOPLASM [None]
  - NICOTINE DEPENDENCE [None]
  - PHARYNGEAL MASS [None]
  - X-RAY ABNORMAL [None]
